APPROVED DRUG PRODUCT: SILDENAFIL CITRATE
Active Ingredient: SILDENAFIL CITRATE
Strength: EQ 50MG BASE
Dosage Form/Route: TABLET;ORAL
Application: A202023 | Product #002 | TE Code: AB
Applicant: AMNEAL PHARMACEUTICALS OF NY LLC
Approved: Jun 27, 2018 | RLD: No | RS: No | Type: RX